FAERS Safety Report 5597299-5 (Version None)
Quarter: 2008Q1

REPORT INFORMATION
  Report Type: 
  Country: None (occurrence: None)
  Receive Date: 20080121
  Receipt Date: 20080110
  Transmission Date: 20080703
  Serious: Yes (Other)
  Sender: FDA-Public Use
  Company Number: US-ROCHE-540543

PATIENT
  Age: 75 Year
  Sex: Male

DRUGS (4)
  1. BONIVA [Suspect]
     Indication: OSTEOPOROSIS
     Route: 048
     Dates: start: 20070701
  2. UNSPECIFIED MEDICATIONS [Concomitant]
  3. UNSPECIFIED MEDICATIONS [Concomitant]
     Dosage: INDICATION: HEART
  4. UNSPECIFIED MEDICATIONS [Concomitant]
     Indication: EMPHYSEMA

REACTIONS (1)
  - CATARACT [None]
